FAERS Safety Report 4851954-0 (Version None)
Quarter: 2005Q4

REPORT INFORMATION
  Report Type: 
  Country: None (occurrence: None)
  Receive Date: 20051209
  Receipt Date: 20051129
  Transmission Date: 20060501
  Serious: Yes (Hospitalization)
  Sender: FDA-Public Use
  Company Number: COV2-2005-00520

PATIENT
  Age: 81 Year
  Sex: Female
  Weight: 59.5 kg

DRUGS (8)
  1. FOSRENOL [Suspect]
     Indication: HYPERPHOSPHATAEMIA
     Dosage: 500 MG, 3X/DAY: TID, ORAL
     Route: 048
     Dates: start: 20050518, end: 20050825
  2. FOSRENOL [Suspect]
     Indication: HYPERPHOSPHATAEMIA
     Dosage: 500 MG, 3X/DAY: TID, ORAL
     Route: 048
     Dates: start: 20050830
  3. NORVASC [Concomitant]
  4. BENICAR [Concomitant]
  5. PROTONIX [Concomitant]
  6. CATAPRES [Concomitant]
  7. RENAGEL [Concomitant]
  8. VITAMIN B12 [Concomitant]

REACTIONS (8)
  - ASTHENIA [None]
  - CAROTID ARTERY STENOSIS [None]
  - DELIRIUM [None]
  - DIZZINESS [None]
  - FATIGUE [None]
  - HEADACHE [None]
  - MITRAL VALVE INCOMPETENCE [None]
  - ORTHOSTATIC HYPOTENSION [None]
